FAERS Safety Report 8048145 (Version 4)
Quarter: 2012Q4

REPORT INFORMATION
  Report Type: 
  Country: US (occurrence: US)
  Receive Date: 20110721
  Receipt Date: 20120911
  Transmission Date: 20130627
  Serious: Yes (Hospitalization)
  Sender: FDA-Public Use
  Company Number: US-B.I. PHARMACEUTICALS,INC./RIDGEFIELD-2011-BP-18050BP

PATIENT
  Age: 77 Year
  Sex: Male
  Weight: 73.48 kg

DRUGS (21)
  1. PRADAXA [Suspect]
     Indication: ATRIAL FIBRILLATION
     Dosage: 300 mg
     Route: 048
     Dates: start: 201101, end: 20110304
  2. LISINOPRIL [Concomitant]
     Indication: HYPERTENSION
     Dosage: 5 mg
     Route: 048
  3. LISINOPRIL [Concomitant]
     Dosage: 20 mg
  4. METOPROLOL TARTRATE [Concomitant]
     Indication: HYPERTENSION
     Dosage: 50 mg
     Route: 048
  5. POTASSIUM CHLORIDE CR [Concomitant]
     Dosage: 8 mEq
     Route: 048
  6. POTASSIUM CHLORIDE CR [Concomitant]
     Dosage: 10 mEq
  7. LASIX [Concomitant]
     Dosage: 80 mg
     Route: 048
  8. FISH OIL [Concomitant]
     Dosage: 1000 NR
     Route: 048
  9. ASPIRIN [Concomitant]
     Dosage: 162 mg
     Route: 048
  10. MULTIVITAMIN SENIOR FORMULA [Concomitant]
     Route: 048
  11. RESTOR [Concomitant]
     Dosage: 20 mg
  12. METOLAZONE [Concomitant]
     Dosage: 5 mg
     Route: 048
  13. AMLODIPINE BESYLATE [Concomitant]
     Dosage: 2.5 mg
     Route: 048
  14. PANTOPRAZOLE SODIUM [Concomitant]
     Dosage: 40 mg
     Route: 048
  15. HYDROCODONE/APAP [Concomitant]
  16. METHADONE [Concomitant]
     Route: 048
  17. NITROGLYCERIN [Concomitant]
     Indication: CHEST PAIN
     Route: 060
  18. SANDOSTATIN [Concomitant]
  19. LOPRESSOR [Concomitant]
  20. NITROGARD [Concomitant]
  21. NORCO [Concomitant]

REACTIONS (11)
  - Haematochezia [Recovered/Resolved]
  - Haematochezia [Recovered/Resolved]
  - Melaena [Recovered/Resolved]
  - Melaena [Recovered/Resolved]
  - Tremor [Recovered/Resolved]
  - Ill-defined disorder [Recovered/Resolved]
  - Malaise [Recovered/Resolved]
  - Upper gastrointestinal haemorrhage [Recovered/Resolved]
  - Intestinal mass [Recovered/Resolved]
  - Small intestinal haemorrhage [Recovered/Resolved]
  - Dizziness [Recovered/Resolved]
